FAERS Safety Report 11216207 (Version 1)
Quarter: 2015Q2

REPORT INFORMATION
  Report Type: Spontaneous
  Country: US (occurrence: US)
  Receive Date: 20150624
  Receipt Date: 20150624
  Transmission Date: 20150821
  Serious: Yes (Death)
  Sender: FDA-Public Use
  Company Number: US-JNJFOC-20150613029

PATIENT
  Sex: Male

DRUGS (1)
  1. DURAGESIC [Suspect]
     Active Substance: FENTANYL
     Indication: PRODUCT USED FOR UNKNOWN INDICATION
     Route: 062

REACTIONS (5)
  - Intentional product misuse [Unknown]
  - Death [Fatal]
  - Brain injury [Unknown]
  - Overdose [Unknown]
  - Drug diversion [Unknown]

NARRATIVE: CASE EVENT DATE: 200810
